FAERS Safety Report 5803052-7 (Version None)
Quarter: 2008Q3

REPORT INFORMATION
  Report Type: 
  Country: None (occurrence: None)
  Receive Date: 20080703
  Receipt Date: 20080623
  Transmission Date: 20090109
  Serious: No
  Sender: FDA-Public Use
  Company Number: 2008-178977-NL

PATIENT
  Age: 36 Year
  Sex: Female

DRUGS (5)
  1. ETONOGESTREL (BATCH #: 761023/744858) [Suspect]
     Dosage: DF
     Dates: start: 20051024, end: 20080616
  2. TRAMADOL HYDROCHLORIDE [Concomitant]
  3. CARBAMAZEPINE [Concomitant]
  4. LAMOTRIGINE [Concomitant]
  5. COVERSYL PLUS [Concomitant]

REACTIONS (2)
  - EPILEPSY [None]
  - PREGNANCY WITH IMPLANT CONTRACEPTIVE [None]
